FAERS Safety Report 20017810 (Version 1)
Quarter: 2021Q4

REPORT INFORMATION
  Report Type: Other
  Country: BE (occurrence: None)
  Receive Date: 20211101
  Receipt Date: 20211101
  Transmission Date: 20220304
  Serious: Yes (Other)
  Sender: FDA-Public Use
  Company Number: BE-Encube-000114

PATIENT
  Age: 31 Year
  Sex: Male

DRUGS (1)
  1. CLINDAMYCIN [Suspect]
     Active Substance: CLINDAMYCIN
     Indication: Parotitis
     Dosage: 600 MG 3/D

REACTIONS (3)
  - Treatment noncompliance [Unknown]
  - Pathogen resistance [Unknown]
  - Cellulitis [Recovered/Resolved]
